FAERS Safety Report 10504126 (Version 1)
Quarter: 2014Q4

REPORT INFORMATION
  Report Type: Spontaneous
  Country: US (occurrence: None)
  Receive Date: 20141007
  Receipt Date: 20141007
  Transmission Date: 20150528
  Serious: Yes (Hospitalization)
  Sender: FDA-Public Use
  Company Number: None

PATIENT
  Age: 78 Year
  Sex: Male
  Weight: 78.18 kg

DRUGS (2)
  1. CISPLATIN. [Suspect]
     Active Substance: CISPLATIN
  2. MORPHINE [Concomitant]
     Active Substance: MORPHINE

REACTIONS (8)
  - Mental status changes [None]
  - Abdominal pain [None]
  - Fluid overload [None]
  - Respiratory distress [None]
  - Sepsis [None]
  - Diarrhoea [None]
  - Pyrexia [None]
  - Blood lactic acid increased [None]

NARRATIVE: CASE EVENT DATE: 20140925
